FAERS Safety Report 5739186-5 (Version None)
Quarter: 2008Q2

REPORT INFORMATION
  Report Type: 
  Country: None (occurrence: None)
  Receive Date: 20080515
  Receipt Date: 20080512
  Transmission Date: 20081010
  Serious: Yes (Life-Threatening, Hospitalization)
  Sender: FDA-Public Use
  Company Number: IT-BRISTOL-MYERS SQUIBB COMPANY-14189120

PATIENT
  Age: 23 Year
  Sex: Female

DRUGS (3)
  1. KARVEA [Suspect]
     Indication: RENAL IMPAIRMENT
     Route: 048
     Dates: start: 20050101
  2. KARVEA [Suspect]
     Indication: HYPERTENSION
     Route: 048
     Dates: start: 20050101
  3. ALLOPURINOL [Suspect]
     Dates: start: 20050101

REACTIONS (3)
  - BONE MARROW FAILURE [None]
  - PLATELET COUNT DECREASED [None]
  - WHITE BLOOD CELL COUNT DECREASED [None]
